FAERS Safety Report 5983375-1 (Version None)
Quarter: 2008Q4

REPORT INFORMATION
  Report Type: 
  Country: None (occurrence: None)
  Receive Date: 20081208
  Receipt Date: 20080305
  Transmission Date: 20090506
  Serious: No
  Sender: FDA-Public Use
  Company Number: US-AMGEN-KDL268402

PATIENT
  Sex: Female

DRUGS (2)
  1. ENBREL [Suspect]
     Indication: RHEUMATOID ARTHRITIS
     Route: 058
     Dates: start: 20050701
  2. PLAQUENIL [Concomitant]
     Dates: start: 20071201

REACTIONS (7)
  - DENTAL IMPLANTATION [None]
  - EAR INFECTION [None]
  - FOLLICULITIS [None]
  - HEADACHE [None]
  - INFUSION SITE EXTRAVASATION [None]
  - INFUSION SITE INFECTION [None]
  - SIALOADENITIS [None]
